FAERS Safety Report 8195384-5 (Version None)
Quarter: 2012Q1

REPORT INFORMATION
  Report Type: 
  Country: None (occurrence: None)
  Receive Date: 20120308
  Receipt Date: 20120301
  Transmission Date: 20120608
  Serious: Yes (Other)
  Sender: FDA-Public Use
  Company Number: PT-GLAXOSMITHKLINE-B0785782A

PATIENT
  Age: 51 Year
  Sex: Male

DRUGS (1)
  1. BACTROBAN [Suspect]
     Indication: CATHETER SITE INFECTION
     Route: 061
     Dates: start: 20110101, end: 20120227

REACTIONS (3)
  - INFECTIOUS PERITONITIS [None]
  - OFF LABEL USE [None]
  - DERMATITIS CONTACT [None]
